FAERS Safety Report 8620958-4 (Version None)
Quarter: 2012Q3

REPORT INFORMATION
  Report Type: 
  Country: None (occurrence: None)
  Receive Date: 20120824
  Receipt Date: 20120814
  Transmission Date: 20120928
  Serious: Yes (Hospitalization, Other)
  Sender: FDA-Public Use
  Company Number: FR-ELI_LILLY_AND_COMPANY-FR201208004065

PATIENT
  Age: 66 Year
  Sex: Female

DRUGS (18)
  1. METHOTREXATE SODIUM [Concomitant]
     Indication: RHEUMATOID ARTHRITIS
     Dosage: 0.142 DF, WEEKLY (1/W)
  2. PREDNISONE TAB [Concomitant]
     Indication: RHEUMATOID ARTHRITIS
  3. ATORVASTATIN [Concomitant]
  4. HYDREA [Concomitant]
     Indication: ESSENTIAL THROMBOCYTHAEMIA
     Dosage: 500 MG, UNKNOWN
  5. LASIX [Concomitant]
     Dosage: 40 MG, QD
     Dates: start: 20120514, end: 20120515
  6. NEXIUM [Concomitant]
  7. ACTONEL [Concomitant]
  8. LORAZEPAM [Concomitant]
  9. AUGMENTIN '125' [Concomitant]
  10. HUMALOG [Suspect]
     Dosage: UNK
     Route: 058
     Dates: start: 20120512, end: 20120517
  11. RIFADIN [Concomitant]
     Dosage: 600 MG, UNK
     Route: 042
  12. XYZAL [Concomitant]
  13. SPIRONOLACTONE [Concomitant]
  14. LAMISIL [Concomitant]
  15. CEFOTAXIME SODIUM [Concomitant]
     Dosage: 1 G, UNKNOWN
     Dates: start: 20120512, end: 20120514
  16. CALCIPARINE [Concomitant]
     Dosage: UNK
     Route: 058
     Dates: start: 20120514, end: 20120518
  17. AMITRIPTYLINE HYDROCHLORIDE [Concomitant]
  18. CLARITHROMYCIN [Concomitant]

REACTIONS (2)
  - PANCYTOPENIA [None]
  - PANCREATITIS ACUTE [None]
